FAERS Safety Report 9117036 (Version 1)
Quarter: 2013Q1

REPORT INFORMATION
  Report Type: Spontaneous
  Country: US (occurrence: US)
  Receive Date: 20130225
  Receipt Date: 20130225
  Transmission Date: 20140127
  Serious: No
  Sender: FDA-Public Use
  Company Number: US-PFIZER INC-2013068048

PATIENT
  Age: 53 Year
  Sex: Male
  Weight: 119.73 kg

DRUGS (2)
  1. ADVIL [Suspect]
  2. NAPROXEN SODIUM [Suspect]

REACTIONS (1)
  - Drug hypersensitivity [Unknown]
